FAERS Safety Report 12083931 (Version 1)
Quarter: 2016Q1

REPORT INFORMATION
  Report Type: Spontaneous
  Country: US (occurrence: None)
  Receive Date: 20160216
  Receipt Date: 20160216
  Transmission Date: 20160526
  Serious: Yes (Disabling)
  Sender: FDA-Public Use
  Company Number: None

PATIENT
  Age: 67 Year
  Sex: Male
  Weight: 69.85 kg

DRUGS (8)
  1. CLINDAMYCIN 150 MG RANBAXY [Suspect]
     Active Substance: CLINDAMYCIN PHOSPHATE
     Indication: TOOTHACHE
     Dosage: 2 AT FIRST 1 EVERY 6 HRS TAKEN BY MOUTH
     Route: 048
     Dates: start: 20160115, end: 20160118
  2. SIMVASTATIN. [Concomitant]
     Active Substance: SIMVASTATIN
  3. PLAVIX [Concomitant]
     Active Substance: CLOPIDOGREL BISULFATE
  4. VANCOMYCIN [Concomitant]
     Active Substance: VANCOMYCIN
  5. WXOTRIN [Concomitant]
  6. NITROSTAT [Concomitant]
     Active Substance: NITROGLYCERIN
  7. TOPROL XL [Concomitant]
     Active Substance: METOPROLOL SUCCINATE
  8. PROTONIX [Concomitant]
     Active Substance: PANTOPRAZOLE SODIUM

REACTIONS (5)
  - Abdominal discomfort [None]
  - Abdominal pain upper [None]
  - Diarrhoea [None]
  - Nausea [None]
  - Clostridium test positive [None]

NARRATIVE: CASE EVENT DATE: 20160210
